FAERS Safety Report 5364322-2 (Version None)
Quarter: 2007Q2

REPORT INFORMATION
  Report Type: 
  Country: None (occurrence: None)
  Receive Date: 20070620
  Receipt Date: 20070612
  Transmission Date: 20071010
  Serious: Yes (Death, Hospitalization)
  Sender: FDA-Public Use
  Company Number: US-MERCK-0706USA02180

PATIENT
  Sex: Male

DRUGS (2)
  1. ZOCOR [Suspect]
     Indication: HYPERTRIGLYCERIDAEMIA
     Route: 048
  2. GEMFIBROZIL [Suspect]
     Route: 065

REACTIONS (8)
  - ACUTE SINUSITIS [None]
  - ATRIAL FIBRILLATION [None]
  - HAEMORRHAGE [None]
  - HEPATITIS FULMINANT [None]
  - MYALGIA [None]
  - RENAL FAILURE ACUTE [None]
  - RESPIRATORY FAILURE [None]
  - RHABDOMYOLYSIS [None]
